FAERS Safety Report 5040653-0 (Version None)
Quarter: 2006Q2

REPORT INFORMATION
  Report Type: 
  Country: None (occurrence: None)
  Receive Date: 20060630
  Receipt Date: 20060630
  Transmission Date: 20061013
  Serious: Yes (Hospitalization)
  Sender: FDA-Public Use
  Company Number: None

PATIENT
  Age: 61 Year
  Sex: Male
  Weight: 72.6 kg

DRUGS (10)
  1. DEPAKOTE [Suspect]
  2. LEVOTHROXINE NA (SYNTHROID) [Concomitant]
  3. INSULIN LISPRO HUMAN [Concomitant]
  4. SIMVASTATIN [Concomitant]
  5. COUMADIN [Concomitant]
  6. HUMALOG [Concomitant]
  7. FLUNISOLIDE INH [Concomitant]
  8. INSULIN GLARGINE HUMAN [Concomitant]
  9. ENALPRIL MALEATE [Concomitant]
  10. RANITIDINE HCL [Concomitant]

REACTIONS (2)
  - RASH [None]
  - URTICARIA [None]
